FAERS Safety Report 7354831-9 (Version None)
Quarter: 2011Q1

REPORT INFORMATION
  Report Type: 
  Country: None (occurrence: None)
  Receive Date: 20110316
  Receipt Date: 20110228
  Transmission Date: 20110831
  Serious: Yes (Life-Threatening, Hospitalization)
  Sender: FDA-Public Use
  Company Number: DK-ASTRAZENECA-2011SE11077

PATIENT
  Age: 62 Year
  Sex: Male

DRUGS (9)
  1. PANTOLOC [Suspect]
     Indication: ABDOMINAL PAIN
     Route: 048
     Dates: start: 20080428, end: 20080507
  2. PANTOLOC [Suspect]
     Route: 048
     Dates: start: 20080527, end: 20080530
  3. LANSOPRAZOLE [Suspect]
     Indication: GASTRIC ULCER
     Route: 048
     Dates: start: 20080507, end: 20080523
  4. CIPROFLOXACIN [Suspect]
     Indication: PYREXIA
     Dates: start: 20080430, end: 20080503
  5. B-COMBIN ^DAK^ [Concomitant]
     Indication: HYPOVITAMINOSIS
  6. MERONEM [Suspect]
     Indication: PYREXIA
     Dosage: 1000 MILLIGRAM(S)
     Route: 042
     Dates: start: 20080511, end: 20080516
  7. FLUCONAZOLE [Suspect]
     Indication: PYREXIA
     Dates: start: 20080429, end: 20080519
  8. THIAMINE [Concomitant]
     Indication: HYPOVITAMINOSIS
     Dates: start: 20080428
  9. ZINACEF [Concomitant]
     Indication: PYREXIA
     Route: 030
     Dates: start: 20080430, end: 20080510

REACTIONS (4)
  - TOXIC EPIDERMAL NECROLYSIS [None]
  - PARAESTHESIA [None]
  - TREMOR [None]
  - PAIN IN EXTREMITY [None]
